FAERS Safety Report 9631593 (Version 1)
Quarter: 2013Q4

REPORT INFORMATION
  Report Type: Spontaneous
  Country: JP (occurrence: JP)
  Receive Date: 20131018
  Receipt Date: 20131018
  Transmission Date: 20140711
  Serious: Yes (Other)
  Sender: FDA-Public Use
  Company Number: US-ASTELLAS-2013US010821

PATIENT
  Age: 86 Year
  Sex: Male

DRUGS (1)
  1. AMBISOME [Suspect]
     Indication: FUNGAL INFECTION
     Dosage: 2.5 MG/KG, UNKNOWN/D
     Route: 042

REACTIONS (1)
  - Pancytopenia [Recovered/Resolved]
